FAERS Safety Report 4563823-4 (Version None)
Quarter: 2005Q1

REPORT INFORMATION
  Report Type: 
  Country: None (occurrence: None)
  Receive Date: 20050125
  Receipt Date: 20050112
  Transmission Date: 20050727
  Serious: Yes (Death, Hospitalization, Other)
  Sender: FDA-Public Use
  Company Number: 2004070849

PATIENT
  Age: 85 Year
  Sex: Female
  Weight: 39 kg

DRUGS (2)
  1. ZITHROMAC [Suspect]
     Indication: PHARYNGITIS
     Dosage: 500 MG (500 MG , 1 IN 1 D), ORAL
     Route: 048
     Dates: start: 20040304, end: 20040808
  2. PL GRAN. (CAFFEINE, PARACETAMOL, PROMETHAZINE METHYLENE  DISALICYLATE, [Suspect]
     Indication: PYREXIA
     Dosage: 3 GRAM (1 GRAM , 3 IN 1 D), ORAL
     Route: 048
     Dates: start: 20040304, end: 20040813

REACTIONS (17)
  - AORTIC VALVE STENOSIS [None]
  - BRONCHITIS [None]
  - CARDIAC FAILURE [None]
  - CARDIAC MURMUR [None]
  - CARDIOMEGALY [None]
  - CHOLELITHIASIS [None]
  - CHOLESTASIS [None]
  - DISSEMINATED INTRAVASCULAR COAGULATION [None]
  - HEPATIC CYST [None]
  - HEPATIC FAILURE [None]
  - HEPATOCELLULAR DAMAGE [None]
  - HEPATOTOXICITY [None]
  - HYPERSENSITIVITY [None]
  - MULTI-ORGAN FAILURE [None]
  - PLEURAL EFFUSION [None]
  - PNEUMONIA [None]
  - RENAL FAILURE [None]
